FAERS Safety Report 5049078-5 (Version None)
Quarter: 2006Q3

REPORT INFORMATION
  Report Type: 
  Country: None (occurrence: None)
  Receive Date: 20060706
  Receipt Date: 20060626
  Transmission Date: 20061208
  Serious: Yes (Life-Threatening)
  Sender: FDA-Public Use
  Company Number: 2006068315

PATIENT
  Age: 94 Year
  Sex: Female

DRUGS (2)
  1. AZITHROMYCIN [Suspect]
     Indication: SEPSIS
     Dosage: INTRAVENOUS
     Route: 042
  2. CEPHALOSPORIN C (CEPHALOSPORIN C) [Concomitant]

REACTIONS (10)
  - DIFFICULT TO WEAN FROM VENTILATOR [None]
  - DRUG ADMINISTRATION ERROR [None]
  - FEEDING TUBE COMPLICATION [None]
  - PNEUMONIA [None]
  - REFUSAL OF TREATMENT BY RELATIVE [None]
  - RESPIRATORY DISTRESS [None]
  - STUPOR [None]
  - SUPRAVENTRICULAR EXTRASYSTOLES [None]
  - VENTRICULAR EXTRASYSTOLES [None]
  - WRONG TECHNIQUE IN DRUG USAGE PROCESS [None]
